FAERS Safety Report 20616167 (Version 1)
Quarter: 2022Q1

REPORT INFORMATION
  Report Type: Spontaneous
  Country: US (occurrence: None)
  Receive Date: 20220318
  Receipt Date: 20220318
  Transmission Date: 20220424
  Serious: Yes (Hospitalization)
  Sender: FDA-Public Use
  Company Number: None

PATIENT
  Age: 76 Year
  Sex: Male

DRUGS (1)
  1. DEFERASIROX [Suspect]
     Active Substance: DEFERASIROX
     Indication: Aplastic anaemia
     Dosage: FREQUENCY : DAILY;?
     Route: 048
     Dates: start: 2020

REACTIONS (2)
  - Nephrolithiasis [None]
  - Pneumonia [None]

NARRATIVE: CASE EVENT DATE: 20211101
